FAERS Safety Report 25650105 (Version 1)
Quarter: 2025Q3

REPORT INFORMATION
  Report Type: Spontaneous
  Country: US (occurrence: US)
  Receive Date: 20250806
  Receipt Date: 20250806
  Transmission Date: 20251021
  Serious: Yes (Hospitalization, Other)
  Sender: SANDOZ
  Company Number: US-SANDOZ-SDZ2025US055334

PATIENT
  Sex: Female
  Weight: 48.5 kg

DRUGS (19)
  1. AMOXICILLIN [Suspect]
     Active Substance: AMOXICILLIN
     Indication: Product used for unknown indication
     Route: 065
     Dates: start: 2015
  2. DEXTROAMPHETAMINE SACCHARATE, AMPHETAMINE ASPARTATE, DEXTROAMPHETAMINE [Suspect]
     Active Substance: AMPHETAMINE ASPARTATE\AMPHETAMINE SULFATE\DEXTROAMPHETAMINE SACCHARATE\DEXTROAMPHETAMINE SULFATE
     Indication: Attention deficit hyperactivity disorder
     Dosage: 10 MG, QD
     Route: 048
     Dates: start: 2020
  3. ALENDRONIC ACID [Suspect]
     Active Substance: ALENDRONIC ACID
     Indication: Osteopenia
     Dosage: 70 MG, QW
     Route: 048
     Dates: start: 20241202
  4. BUSPIRONE [Suspect]
     Active Substance: BUSPIRONE HYDROCHLORIDE
     Indication: Depression
     Dosage: 30 MG, QD
     Route: 048
     Dates: start: 2022
  5. CETIRIZINE [Suspect]
     Active Substance: CETIRIZINE HYDROCHLORIDE
     Indication: Rhinitis allergic
     Route: 048
     Dates: start: 202401
  6. DESVENLAFAXINE [Suspect]
     Active Substance: DESVENLAFAXINE
     Dosage: 25 MG, QD
     Route: 048
     Dates: start: 20250612
  7. DESVENLAFAXINE [Suspect]
     Active Substance: DESVENLAFAXINE
     Indication: Depression
     Dosage: 50 MG, QD
     Route: 048
     Dates: start: 201912, end: 20250711
  8. DULOXETINE [Suspect]
     Active Substance: DULOXETINE
     Indication: Depression
     Dosage: 90 MG, QD
     Route: 048
     Dates: start: 202207
  9. FOLIC ACID [Suspect]
     Active Substance: FOLIC ACID
     Indication: Prophylaxis
     Dosage: 1 MG, QD
     Route: 048
     Dates: start: 202402
  10. HYDROXYCHLOROQUINE [Suspect]
     Active Substance: HYDROXYCHLOROQUINE
     Indication: Rheumatoid arthritis
     Dosage: 200 MG, BID
     Route: 048
     Dates: start: 20240202, end: 20250524
  11. HYDROXYZINE [Suspect]
     Active Substance: HYDROXYZINE HYDROCHLORIDE
     Indication: Rhinitis allergic
     Dosage: 25 MG, QD
     Route: 048
     Dates: start: 2023
  12. LORAZEPAM [Suspect]
     Active Substance: LORAZEPAM
     Indication: Depression
     Route: 048
     Dates: start: 20250612
  13. METHOTREXATE [Suspect]
     Active Substance: METHOTREXATE
     Indication: Rheumatoid arthritis
     Dosage: 20 MG, QW
     Route: 048
     Dates: start: 202402, end: 20250524
  14. PHENOL [Suspect]
     Active Substance: PHENOL
     Indication: Pharyngitis
     Route: 048
     Dates: start: 20250520, end: 20250530
  15. PREDNISOLONE [Suspect]
     Active Substance: PREDNISOLONE
     Indication: Prophylaxis
     Dosage: 50 MG, QD
     Route: 048
     Dates: start: 20240806, end: 20240806
  16. PREDNISONE [Suspect]
     Active Substance: PREDNISONE
     Indication: Rheumatoid arthritis
     Dosage: 15 MG, QD
     Route: 048
     Dates: start: 20250312, end: 20250315
  17. TIZANIDINE [Suspect]
     Active Substance: TIZANIDINE
     Indication: Muscle spasms
     Route: 048
     Dates: start: 2023
  18. TRIAMCINOLONE [Suspect]
     Active Substance: TRIAMCINOLONE
     Indication: Trigger finger
     Dosage: 1 ML, QD ( STRENGTH 0.5 ML)
     Route: 030
     Dates: start: 20241003, end: 20241003
  19. XYLOCAINE [Suspect]
     Active Substance: LIDOCAINE HYDROCHLORIDE
     Indication: Trigger finger
     Dosage: 1 ML, QD ( STRENGTH 0.5 ML)
     Route: 030
     Dates: start: 20241003, end: 20241003

REACTIONS (6)
  - Pneumonia aspiration [Recovered/Resolved]
  - Gastrooesophageal reflux disease [Recovered/Resolved]
  - Oropharyngeal pain [Recovered/Resolved]
  - Dysgeusia [Recovered/Resolved]
  - Decreased appetite [Recovered/Resolved]
  - Urticaria [Unknown]
